FAERS Safety Report 11966211 (Version 1)
Quarter: 2016Q1

REPORT INFORMATION
  Report Type: Spontaneous
  Country: US (occurrence: None)
  Receive Date: 20160126
  Receipt Date: 20160126
  Transmission Date: 20160526
  Serious: No
  Sender: FDA-Public Use
  Company Number: None

PATIENT
  Age: 74 Year
  Sex: Female
  Weight: 56.7 kg

DRUGS (11)
  1. SYNTHROID [Concomitant]
     Active Substance: LEVOTHYROXINE SODIUM
  2. MAGNESIUM CITRATE. [Concomitant]
     Active Substance: MAGNESIUM CITRATE
  3. SIMVISTATIN [Concomitant]
     Active Substance: SIMVASTATIN
  4. OMEGA 3 FISH OIL [Concomitant]
     Active Substance: FISH OIL\OMEGA-3 FATTY ACIDS
  5. ESTRACE [Suspect]
     Active Substance: ESTRADIOL
     Indication: DRUG THERAPY
     Dosage: 1 APPLICATOR 2X WEEK VAGINAL
     Route: 067
     Dates: start: 20151211, end: 20151214
  6. VITAMIN D3 [Concomitant]
     Active Substance: CHOLECALCIFEROL
  7. 81 MG ASPIRIN [Concomitant]
  8. AMLODIPINE [Concomitant]
     Active Substance: AMLODIPINE BESYLATE
  9. CO-ENZYNE Q-10 [Concomitant]
  10. CALCIUM CITRATE [Concomitant]
     Active Substance: CALCIUM CITRATE
  11. MELATONIN [Concomitant]
     Active Substance: MELATONIN

REACTIONS (1)
  - Vulvovaginal burning sensation [None]

NARRATIVE: CASE EVENT DATE: 20151211
